FAERS Safety Report 8593955-5 (Version None)
Quarter: 2012Q3

REPORT INFORMATION
  Report Type: 
  Country: None (occurrence: None)
  Receive Date: 20120814
  Receipt Date: 20120810
  Transmission Date: 20120928
  Serious: No
  Sender: FDA-Public Use
  Company Number: US-TEVA-353280USA

PATIENT
  Sex: Male
  Weight: 72.64 kg

DRUGS (3)
  1. PROAIR HFA [Suspect]
     Indication: CHRONIC OBSTRUCTIVE PULMONARY DISEASE
     Dosage: Q6H PRN
     Dates: start: 20120802
  2. FLUTICASONE PROPIONATE [Concomitant]
     Indication: CHRONIC OBSTRUCTIVE PULMONARY DISEASE
  3. LORTAB [Concomitant]
     Indication: PAIN

REACTIONS (4)
  - TONGUE BLISTERING [None]
  - GLOSSODYNIA [None]
  - THROAT IRRITATION [None]
  - DYSPHONIA [None]
